FAERS Safety Report 9819122 (Version 2)
Quarter: 2014Q1

REPORT INFORMATION
  Report Type: Report from Study
  Country: CA (occurrence: CA)
  Receive Date: 20140115
  Receipt Date: 20140115
  Transmission Date: 20141002
  Serious: Yes (Hospitalization, Other)
  Sender: FDA-Public Use
  Company Number: CA-BRISTOL-MYERS SQUIBB COMPANY-16931636

PATIENT
  Age: 80 Year
  Sex: Female
  Weight: 85.71 kg

DRUGS (1)
  1. ORENCIA [Suspect]
     Indication: RHEUMATOID ARTHRITIS
     Dosage: INF:7,LAST INF ON 31AUG12,CYCLE 9:EXP-SEP15?3H64999;EXP-APR16?LST DO 10OCT13
     Route: 042
     Dates: start: 20120608

REACTIONS (6)
  - Escherichia infection [Unknown]
  - Cataract [Unknown]
  - Fatigue [Unknown]
  - Oral herpes [Recovering/Resolving]
  - Alopecia [Not Recovered/Not Resolved]
  - Rash pustular [Unknown]
